FAERS Safety Report 8559284-0 (Version None)
Quarter: 2012Q3

REPORT INFORMATION
  Report Type: 
  Country: None (occurrence: None)
  Receive Date: 20120802
  Receipt Date: 20120730
  Transmission Date: 20120928
  Serious: Yes (Life-Threatening, Other)
  Sender: FDA-Public Use
  Company Number: PHEH2012US015003

PATIENT
  Sex: Female

DRUGS (2)
  1. FOSAMAX [Suspect]
     Indication: OSTEOPOROSIS
     Dosage: 70 MG
     Dates: start: 20021014, end: 20080801
  2. RECLAST [Suspect]
     Indication: OSTEOPOROSIS
     Dates: start: 20080901

REACTIONS (8)
  - NERVE INJURY [None]
  - ANXIETY [None]
  - STAPHYLOCOCCAL INFECTION [None]
  - FRACTURE NONUNION [None]
  - POST PROCEDURAL INFECTION [None]
  - EMOTIONAL DISTRESS [None]
  - POST PROCEDURAL COMPLICATION [None]
  - FEMUR FRACTURE [None]
